FAERS Safety Report 20327310 (Version 1)
Quarter: 2022Q1

REPORT INFORMATION
  Report Type: Spontaneous
  Country: IN (occurrence: IN)
  Receive Date: 20220112
  Receipt Date: 20220112
  Transmission Date: 20220423
  Serious: Yes (Hospitalization)
  Sender: FDA-Public Use
  Company Number: IN-PFIZER INC-202101191851

PATIENT
  Age: 55 Year
  Sex: Female

DRUGS (5)
  1. PALBOCICLIB [Suspect]
     Active Substance: PALBOCICLIB
     Indication: Breast cancer metastatic
     Dosage: 125 MG, 1X/DAY
     Route: 048
     Dates: start: 20210105
  2. PALBOCICLIB [Suspect]
     Active Substance: PALBOCICLIB
     Dosage: 125 MG, 1X/DAY
     Route: 048
     Dates: start: 20210112
  3. LETERO [Concomitant]
     Dosage: 2.5 MG 1-0-0 X CONTINUE
  4. SHELCAL [CALCIUM CARBONATE;COLECALCIFEROL] [Concomitant]
     Dosage: 500 MG 1 -0-1 X CONTINUE
  5. ZOLEDAC [Concomitant]
     Dosage: 4 MG IN 100 ML NORMAL SALINE OVER 15 MINS

REACTIONS (2)
  - Bone hypertrophy [Unknown]
  - Pain in extremity [Unknown]
